FAERS Safety Report 8006508-4 (Version None)
Quarter: 2011Q4

REPORT INFORMATION
  Report Type: 
  Country: None (occurrence: None)
  Receive Date: 20111226
  Receipt Date: 20111214
  Transmission Date: 20120403
  Serious: Yes (Other)
  Sender: FDA-Public Use
  Company Number: PHEH2011US011660

PATIENT
  Sex: Female

DRUGS (8)
  1. LIPITOR [Concomitant]
  2. DIOVAN [Suspect]
     Dosage: 80 MG, ONE PER DAY
  3. POLYETHYLENE GLYCOL [Suspect]
  4. LEVOTHYROXINE SODIUM [Concomitant]
  5. REMERON [Concomitant]
  6. LORAZEPAM [Concomitant]
  7. CLOMIPRAMINE HCL [Concomitant]
  8. LORATADINE [Concomitant]
     Dosage: UNK

REACTIONS (4)
  - TEARFULNESS [None]
  - DRUG INEFFECTIVE [None]
  - SUICIDAL IDEATION [None]
  - DEPRESSION [None]
